FAERS Safety Report 4456891-1 (Version None)
Quarter: 2004Q3

REPORT INFORMATION
  Report Type: 
  Country: None (occurrence: None)
  Receive Date: 20040921
  Receipt Date: 20040802
  Transmission Date: 20050211
  Serious: Yes (Hospitalization, Other)
  Sender: FDA-Public Use
  Company Number: RB-828-2004

PATIENT
  Age: 41 Year
  Sex: Male

DRUGS (4)
  1. BUPRENORPHINE HCL [Suspect]
     Indication: DRUG DEPENDENCE
     Dosage: 12 MG QD//8 MG QD SL/IV/SL/IV
     Dates: end: 20020801
  2. BUPRENORPHINE HCL [Suspect]
     Indication: DRUG DEPENDENCE
     Dosage: 12 MG QD//8 MG QD SL/IV/SL/IV
     Dates: end: 20020801
  3. BUPRENORPHINE HCL [Suspect]
     Indication: DRUG DEPENDENCE
     Dosage: 12 MG QD//8 MG QD SL/IV/SL/IV
     Dates: start: 20020801
  4. BUPRENORPHINE HCL [Suspect]
     Indication: DRUG DEPENDENCE
     Dosage: 12 MG QD//8 MG QD SL/IV/SL/IV
     Dates: start: 20020801

REACTIONS (2)
  - INTENTIONAL MISUSE [None]
  - SQUAMOUS CELL CARCINOMA [None]
